FAERS Safety Report 17425285 (Version 1)
Quarter: 2020Q1

REPORT INFORMATION
  Report Type: Spontaneous
  Country: CA (occurrence: CA)
  Receive Date: 20200217
  Receipt Date: 20200217
  Transmission Date: 20200409
  Serious: Yes (Death, Hospitalization, Other)
  Sender: FDA-Public Use
  Company Number: NVSC2020CA040649

PATIENT
  Sex: Male
  Weight: 75 kg

DRUGS (12)
  1. VENOFER [Concomitant]
     Active Substance: IRON SUCROSE
     Indication: PRODUCT USED FOR UNKNOWN INDICATION
     Dosage: 300 MG (300 MG/15 ML ONCE EVERY 2 WEEKS REGULARLY)
     Route: 042
  2. SANDOZ IRBESARTAN [Suspect]
     Active Substance: IRBESARTAN
     Indication: PRODUCT USED FOR UNKNOWN INDICATION
     Dosage: 1 DF, QD
     Route: 065
  3. SYNTHROID [Concomitant]
     Active Substance: LEVOTHYROXINE SODIUM
     Indication: THYROID THERAPY
     Dosage: 1 DF, QD
     Route: 065
  4. RIVA-BACLOFEN [Concomitant]
     Indication: PRODUCT USED FOR UNKNOWN INDICATION
     Dosage: 1 DF, BID (1 TABLET TWICE A DAY, IN THE MORNING AND IN THE EVENING REGULARLY
     Route: 065
  5. JAMP DICYCLOMINE HCL [Concomitant]
     Indication: PRODUCT USED FOR UNKNOWN INDICATION
     Dosage: 1 DF, Q8H (1 TABLET 4 TIMES A DAY BEFORE MEALS AND AT BEDTIME IF NEEDED)
     Route: 065
  6. INLYTA [Concomitant]
     Active Substance: AXITINIB
     Indication: RENAL CELL CARCINOMA
     Dosage: 3 DF, QD ((2 TABLETS IN THE MORNING AND 1 TABLET AT BEDTIME REGULARLY)
     Route: 048
     Dates: start: 20190628, end: 20191029
  7. STATEX [Concomitant]
     Indication: PAIN
     Dosage: 1 DF EVERY HOUS (IF NEEDED; INTERMEDIATE SERVING 100 TABLETS AT A TIME)
     Route: 065
  8. M ESLON [Concomitant]
     Active Substance: MORPHINE SULFATE
     Indication: PRODUCT USED FOR UNKNOWN INDICATION
     Dosage: 2 DF, BID (1-2 TABLETS TWICE A DAY EVERY 12 HOURS)
     Route: 065
  9. SANDOZ RABEPRAZOLE [Suspect]
     Active Substance: RABEPRAZOLE
     Indication: PRODUCT USED FOR UNKNOWN INDICATION
     Dosage: 1 DF, BID
     Route: 065
  10. RIVA PREGABALIN [Concomitant]
     Indication: PRODUCT USED FOR UNKNOWN INDICATION
     Dosage: 1 DF, BID ((AT LUNCH AND AT DINNER REGULARLY)
     Route: 065
  11. INLYTA [Concomitant]
     Active Substance: AXITINIB
     Dosage: 3 DF, QD (1 TABLET IN THE MORNING, 2 TABLETS IN THE EVENING)
     Route: 065
     Dates: start: 20191029, end: 20191103
  12. PROCHLORAZINE [Concomitant]
     Indication: PRODUCT USED FOR UNKNOWN INDICATION
     Dosage: 10 MG, Q4H (IF1 TABLET EVERY 4 HOURS IF NEEDED IN CASE OF NAUSEA)
     Route: 065

REACTIONS (12)
  - Blood bilirubin increased [Unknown]
  - Dyslipidaemia [Unknown]
  - Pain [Unknown]
  - Diabetes mellitus [Unknown]
  - Arteriosclerosis [Unknown]
  - Cellulitis [Unknown]
  - Hypothyroidism [Unknown]
  - General physical health deterioration [Unknown]
  - Renal failure [Unknown]
  - Drug hypersensitivity [Unknown]
  - Hypertension [Unknown]
  - Metastatic renal cell carcinoma [Fatal]

NARRATIVE: CASE EVENT DATE: 20170804
